FAERS Safety Report 15959485 (Version 1)
Quarter: 2019Q1

REPORT INFORMATION
  Report Type: Spontaneous
  Country: DE (occurrence: DE)
  Receive Date: 20190214
  Receipt Date: 20190214
  Transmission Date: 20190417
  Serious: Yes (Other)
  Sender: FDA-Public Use
  Company Number: DE-ACCORD-107118

PATIENT
  Age: 65 Year
  Sex: Female
  Weight: 67 kg

DRUGS (4)
  1. ASPIRIN. [Concomitant]
     Active Substance: ASPIRIN
     Indication: TACHYCARDIA
     Dosage: DAILY DOSE: 1 DF DOSAGE FORM EVERY DAYS, 100
     Dates: start: 20171119
  2. PRAVASTATIN. [Suspect]
     Active Substance: PRAVASTATIN
     Indication: CORONARY ARTERY DISEASE
     Dates: start: 20180513, end: 20180606
  3. SIMVASTATIN. [Suspect]
     Active Substance: SIMVASTATIN
     Indication: CORONARY ARTERY DISEASE
     Dosage: ALSO RECEIVED 40 MG FROM 07-JUN-2018 TO 10-JUN-2018
     Dates: start: 20180503, end: 20180513
  4. IVABRADINE/IVABRADINE HYDROCHLORIDE [Concomitant]
     Indication: TACHYCARDIA
     Dosage: ALSO RECEIVED 10 MG FROM 04-JUN-2018
     Dates: start: 2018, end: 20180603

REACTIONS (4)
  - Orthopnoea [Not Recovered/Not Resolved]
  - Cough [Not Recovered/Not Resolved]
  - Dyspnoea exertional [Not Recovered/Not Resolved]
  - Heart rate increased [Not Recovered/Not Resolved]

NARRATIVE: CASE EVENT DATE: 2018
